FAERS Safety Report 4436709-3 (Version None)
Quarter: 2004Q3

REPORT INFORMATION
  Report Type: 
  Country: None (occurrence: None)
  Receive Date: 20040728
  Receipt Date: 20030916
  Transmission Date: 20050211
  Serious: Yes (Hospitalization)
  Sender: FDA-Public Use
  Company Number: 202511

PATIENT
  Age: 82 Year
  Sex: Male

DRUGS (3)
  1. RITUXAN [Suspect]
     Indication: NON-HODGKIN'S LYMPHOMA
     Dosage: INTRAVENOUS
     Route: 042
     Dates: start: 20030708
  2. ZEVALIN [Suspect]
     Indication: NON-HODGKIN'S LYMPHOMA
     Dates: start: 20030708
  3. Y-90 (YTRIUM-90) [Suspect]
     Indication: NON-HODGKIN'S LYMPHOMA
     Dosage: 0.3 MCI/KG

REACTIONS (1)
  - THROMBOCYTOPENIA [None]
